FAERS Safety Report 8553911 (Version 2)
Quarter: 2013Q2

REPORT INFORMATION
  Report Type: Spontaneous
  Country: US (occurrence: US)
  Receive Date: 20120509
  Receipt Date: 20130610
  Transmission Date: 20140414
  Serious: Yes (Other)
  Sender: FDA-Public Use
  Company Number: US-ROCHE-1035677

PATIENT
  Age: 41 Year
  Sex: Male
  Weight: 84.9 kg

DRUGS (1)
  1. ACCUTANE [Suspect]
     Indication: ACNE CYSTIC
     Route: 065
     Dates: start: 199502, end: 199507

REACTIONS (12)
  - Colitis ulcerative [Unknown]
  - Emotional distress [Unknown]
  - Anxiety [Unknown]
  - Inflammatory bowel disease [Unknown]
  - Large intestine polyp [Unknown]
  - Rectal polyp [Unknown]
  - Anal polyp [Unknown]
  - Depression [Unknown]
  - Suicidal ideation [Unknown]
  - Irritable bowel syndrome [Unknown]
  - Diverticulum [Unknown]
  - Osteoarthritis [Unknown]
